FAERS Safety Report 6610383-X (Version None)
Quarter: 2010Q1

REPORT INFORMATION
  Report Type: 
  Country: None (occurrence: None)
  Receive Date: 20100302
  Receipt Date: 20100218
  Transmission Date: 20100710
  Serious: Yes (Death, Life-Threatening, Hospitalization)
  Sender: FDA-Public Use
  Company Number: JP-PFIZER INC-2009264900

PATIENT
  Age: 50 Year
  Sex: Female
  Weight: 62 kg

DRUGS (8)
  1. SUNITINIB MALATE [Suspect]
     Indication: METASTATIC RENAL CELL CARCINOMA
     Dosage: 50 MG, 1X/DAY
     Route: 048
     Dates: start: 20081202, end: 20081216
  2. AMLODIPINE [Concomitant]
     Dosage: UNK
     Route: 048
     Dates: end: 20090103
  3. FLUITRAN [Concomitant]
     Dosage: UNK
     Route: 048
     Dates: end: 20090103
  4. EXCEGRAN [Concomitant]
     Dosage: UNK
     Route: 048
     Dates: end: 20090103
  5. DECADRON [Concomitant]
     Dosage: UNK
     Route: 048
     Dates: end: 20090103
  6. METHYCOBAL [Concomitant]
     Dosage: UNK
     Route: 048
     Dates: end: 20090103
  7. LENDORMIN [Concomitant]
     Dosage: UNK
     Route: 048
     Dates: end: 20090103
  8. MAGNESIUM OXIDE [Concomitant]
     Dosage: UNK
     Route: 048
     Dates: end: 20090103

REACTIONS (3)
  - PLATELET COUNT DECREASED [None]
  - PLEURAL EFFUSION [None]
  - PNEUMONIA [None]
